FAERS Safety Report 6344295-6 (Version None)
Quarter: 2009Q3

REPORT INFORMATION
  Report Type: 
  Country: None (occurrence: None)
  Receive Date: 20090903
  Receipt Date: 20090831
  Transmission Date: 20100115
  Serious: Yes (Death)
  Sender: FDA-Public Use
  Company Number: JHP200900262

PATIENT

DRUGS (1)
  1. EPINEPHRINE [Suspect]
     Dosage: 1 MG/ML, INJECTION

REACTIONS (6)
  - ACCIDENTAL EXPOSURE [None]
  - ARRHYTHMIA [None]
  - CARDIAC ARREST [None]
  - DRUG ADMINISTRATION ERROR [None]
  - IATROGENIC INJURY [None]
  - INCORRECT ROUTE OF DRUG ADMINISTRATION [None]
